FAERS Safety Report 5165501-X (Version None)
Quarter: 2006Q4

REPORT INFORMATION
  Report Type: 
  Country: None (occurrence: None)
  Receive Date: 20061206
  Receipt Date: 20060301
  Transmission Date: 20070319
  Serious: Yes (Other)
  Sender: FDA-Public Use
  Company Number: US-ROCHE-438831

PATIENT
  Age: 24 Year
  Sex: Female
  Weight: 63.5 kg

DRUGS (5)
  1. ACCUTANE [Suspect]
     Indication: ACNE
     Route: 048
     Dates: start: 19830615, end: 19830615
  2. ACCUTANE [Suspect]
     Route: 048
     Dates: start: 19840813
  3. ACCUTANE [Suspect]
     Dosage: ACCUTANE DECREASED TO 1 DAILY OR ONE ONCE DAILY OR ONE TWICE WEEKLY.
     Route: 048
     Dates: start: 19850114, end: 19850314
  4. ACCUTANE [Suspect]
     Route: 048
     Dates: start: 19870115, end: 19870615
  5. 1 CONCOMITANT DRUG [Concomitant]
     Indication: HEADACHE
     Dosage: DRUG REPORTED AS ASPIRIN/TYLENOL.

REACTIONS (54)
  - ANORECTAL DISORDER [None]
  - ANXIETY [None]
  - ARTERIOSCLEROSIS [None]
  - ARTERIOSCLEROSIS CORONARY ARTERY [None]
  - ASTHENIA [None]
  - BRONCHOSPASM [None]
  - CHEST PAIN [None]
  - CLOSTRIDIUM DIFFICILE COLITIS [None]
  - COLITIS ULCERATIVE [None]
  - COLON ADENOMA [None]
  - COLONIC POLYP [None]
  - CROHN'S DISEASE [None]
  - CYST [None]
  - DEMYELINATION [None]
  - DEPRESSION [None]
  - DIZZINESS [None]
  - DRUG INEFFECTIVE [None]
  - DYSPHAGIA [None]
  - DYSPNOEA PAROXYSMAL NOCTURNAL [None]
  - ENDOMETRIOSIS [None]
  - ESSENTIAL HYPERTENSION [None]
  - FAMILY STRESS [None]
  - FATIGUE [None]
  - GASTRITIS EROSIVE [None]
  - GASTROINTESTINAL TRACT ADENOMA [None]
  - HAEMORRHOIDS [None]
  - HEADACHE [None]
  - HEART INJURY [None]
  - HEART RATE DECREASED [None]
  - HYPOAESTHESIA [None]
  - INFLAMMATORY BOWEL DISEASE [None]
  - LYMPHADENOPATHY [None]
  - MIDDLE INSOMNIA [None]
  - MITRAL VALVE INCOMPETENCE [None]
  - MITRAL VALVE PROLAPSE [None]
  - MULTIPLE SCLEROSIS [None]
  - NASAL SEPTUM DEVIATION [None]
  - NEUROSIS [None]
  - NON-HODGKIN'S LYMPHOMA [None]
  - OSTEOARTHRITIS [None]
  - PALPITATIONS [None]
  - PANCREATITIS [None]
  - PANIC DISORDER [None]
  - PHARYNGOLARYNGEAL PAIN [None]
  - PNEUMONIA [None]
  - PRURITUS [None]
  - RECTAL HAEMORRHAGE [None]
  - SALIVARY GLAND MASS [None]
  - SYNCOPE [None]
  - SYNCOPE VASOVAGAL [None]
  - SYSTEMIC LUPUS ERYTHEMATOSUS [None]
  - TRANSIENT ISCHAEMIC ATTACK [None]
  - TRICUSPID VALVE INCOMPETENCE [None]
  - VENTRICULAR EXTRASYSTOLES [None]
